FAERS Safety Report 24458870 (Version 1)
Quarter: 2024Q4

REPORT INFORMATION
  Report Type: Spontaneous
  Country: PT (occurrence: PT)
  Receive Date: 20241018
  Receipt Date: 20241018
  Transmission Date: 20250115
  Serious: No
  Sender: ROCHE
  Company Number: PT-ROCHE-3525408

PATIENT
  Age: 66 Year
  Sex: Female

DRUGS (11)
  1. RITUXIMAB [Suspect]
     Active Substance: RITUXIMAB
     Indication: Shrinking lung syndrome
     Dosage: TWO INFUSION, 2 WEEK APART
     Route: 042
  2. BELIMUMAB [Suspect]
     Active Substance: BELIMUMAB
     Indication: Shrinking lung syndrome
     Route: 042
     Dates: start: 202007
  3. BELIMUMAB [Suspect]
     Active Substance: BELIMUMAB
     Dosage: RESUMED 4 WEEKS AFTER THE LAST RITUXIMAB INFUSION
     Route: 042
  4. BELIMUMAB [Suspect]
     Active Substance: BELIMUMAB
     Route: 042
  5. PREDNISOLONE [Concomitant]
     Active Substance: PREDNISOLONE
  6. PREDNISOLONE [Concomitant]
     Active Substance: PREDNISOLONE
     Dosage: TAPERED OFF
     Dates: start: 202101
  7. PREDNISOLONE [Concomitant]
     Active Substance: PREDNISOLONE
     Route: 048
  8. PREDNISOLONE [Concomitant]
     Active Substance: PREDNISOLONE
  9. HYDROXYCHLOROQUINE [Concomitant]
     Active Substance: HYDROXYCHLOROQUINE
  10. METHOTREXATE [Concomitant]
     Active Substance: METHOTREXATE
     Route: 058
  11. METHYLPREDNISOLONE [Concomitant]
     Active Substance: METHYLPREDNISOLONE
     Dosage: FOR 3 DAYS
     Route: 042

REACTIONS (2)
  - Off label use [Unknown]
  - No adverse event [Unknown]
